FAERS Safety Report 24573479 (Version 1)
Quarter: 2024Q4

REPORT INFORMATION
  Report Type: Spontaneous
  Country: GB (occurrence: GB)
  Receive Date: 20241102
  Receipt Date: 20241102
  Transmission Date: 20250115
  Serious: Yes (Other)
  Sender: AUROBINDO
  Company Number: GB-MHRA-TPP13439418C10664895YC1729524451400

PATIENT
  Age: 77 Year
  Sex: Male
  Weight: 59 kg

DRUGS (12)
  1. AMLODIPINE BESYLATE [Suspect]
     Active Substance: AMLODIPINE BESYLATE
     Indication: Ill-defined disorder
     Dosage: 5 MILLIGRAM, ONCE A DAY
     Route: 065
     Dates: start: 20241014
  2. HYDROCORTISONE [Concomitant]
     Active Substance: HYDROCORTISONE
     Indication: Ill-defined disorder
     Dosage: APPLY, TWO TIMES A DAY FOR 1-2 WEEK
     Route: 065
     Dates: start: 20240925
  3. Adjuvanted quadrivalent influenza vaccine [Concomitant]
     Indication: Ill-defined disorder
     Dosage: UNK UNK, AS DIRECTED
     Route: 065
     Dates: start: 20241012
  4. CARBOMER [Concomitant]
     Active Substance: CARBOMER
     Indication: Ill-defined disorder
     Dosage: APPLY, FOUR TIMES/DAY TO THE AFFECTED EYE(S)
     Route: 065
     Dates: start: 20170601
  5. ASPIRIN [Concomitant]
     Active Substance: ASPIRIN
     Indication: Ill-defined disorder
     Dosage: 1 DOSAGE FORM, DAILY
     Route: 065
     Dates: start: 20220202
  6. ATORVASTATIN [Concomitant]
     Active Substance: ATORVASTATIN
     Indication: Ill-defined disorder
     Dosage: 1 DOSAGE FORM, AT BED TIME
     Route: 065
     Dates: start: 20220725
  7. BISOPROLOL [Concomitant]
     Active Substance: BISOPROLOL\BISOPROLOL FUMARATE
     Indication: Ill-defined disorder
     Dosage: 1 DOSAGE FORM, DAILY
     Route: 065
     Dates: start: 20220725
  8. NITROGLYCERIN [Concomitant]
     Active Substance: NITROGLYCERIN
     Indication: Ill-defined disorder
     Dosage: SPRAY ONE OR TWO DOSES UNDER TONGUE AND THEN CL...
     Route: 065
     Dates: start: 20220726
  9. OMEPRAZOLE [Concomitant]
     Active Substance: OMEPRAZOLE
     Indication: Ill-defined disorder
     Dosage: 1 DOSAGE FORM, DAILY
     Route: 065
     Dates: start: 20230118
  10. CANDESARTAN [Concomitant]
     Active Substance: CANDESARTAN
     Indication: Ill-defined disorder
     Dosage: 1 DOSAGE FORM, DAILY
     Route: 065
     Dates: start: 20230302
  11. TAMSULOSIN HYDROCHLORIDE [Concomitant]
     Active Substance: TAMSULOSIN HYDROCHLORIDE
     Indication: Ill-defined disorder
     Dosage: 1 DOSAGE FORM, DAILY
     Route: 065
     Dates: start: 20230412
  12. HYALURONATE SODIUM\TREHALOSE [Concomitant]
     Active Substance: HYALURONATE SODIUM\TREHALOSE
     Indication: Ill-defined disorder
     Dosage: FOUR TIMES A DAY TO BOTH EYES
     Route: 065
     Dates: start: 20230928

REACTIONS (2)
  - Hypotension [Recovered/Resolved]
  - Pollakiuria [Unknown]
